FAERS Safety Report 7381259-8 (Version None)
Quarter: 2011Q1

REPORT INFORMATION
  Report Type: 
  Country: None (occurrence: None)
  Receive Date: 20110321
  Receipt Date: 20100212
  Transmission Date: 20110831
  Serious: Yes (Hospitalization, Disabling, Other)
  Sender: FDA-Public Use
  Company Number: 2010SP009228

PATIENT
  Age: 19 Year
  Sex: Female
  Weight: 83.4619 kg

DRUGS (1)
  1. NUVARING [Suspect]
     Indication: CONTRACEPTION
     Dosage: 1 DF;QM;VAG
     Route: 067
     Dates: start: 20080128, end: 20080217

REACTIONS (7)
  - MIGRAINE [None]
  - DYSSTASIA [None]
  - INJURY [None]
  - RECTAL HAEMORRHAGE [None]
  - DEEP VEIN THROMBOSIS [None]
  - UNEMPLOYMENT [None]
  - ADNEXA UTERI CYST [None]
